FAERS Safety Report 8509810 (Version 6)
Quarter: 2012Q4

REPORT INFORMATION
  Report Type: 
  Country: GB (occurrence: GB)
  Receive Date: 20120413
  Receipt Date: 20121228
  Transmission Date: 20130627
  Serious: Yes (Other)
  Sender: FDA-Public Use
  Company Number: PHFR2012GB002156

PATIENT
  Age: 51 None
  Sex: Female
  Weight: 65 kg

DRUGS (8)
  1. CLOZARIL [Suspect]
     Indication: SCHIZOPHRENIA
     Dosage: UNK
     Route: 048
     Dates: start: 20080730
  2. CLOZARIL [Suspect]
     Dosage: 325 mg, Daily
     Route: 048
  3. LITHIUM CARBONATE [Concomitant]
     Indication: AFFECTIVE DISORDER
     Dosage: 600 mg,Daily
     Route: 048
     Dates: end: 20120516
  4. SIMVASTATIN [Concomitant]
     Indication: BLOOD CHOLESTEROL INCREASED
     Dosage: 40 mg, UNK
     Route: 048
  5. HYOSCINE BUTYLBROMIDE [Concomitant]
     Indication: SALIVARY HYPERSECRETION
     Dosage: 900 mg, Daily
     Route: 048
  6. LANSOPRAZOLE [Concomitant]
     Indication: GASTRITIS
     Dosage: 30 mg, UNK
     Route: 048
  7. ARIPIPRAZOLE [Concomitant]
     Dosage: 15 mg, Daily
     Route: 048
  8. VALPROATE SODIUM [Concomitant]
     Indication: AFFECTIVE DISORDER
     Dosage: 2.4 g, Daily
     Route: 048

REACTIONS (9)
  - Transient ischaemic attack [Recovered/Resolved]
  - Renal impairment [Recovered/Resolved]
  - Glomerular filtration rate decreased [Not Recovered/Not Resolved]
  - Blood creatinine increased [Not Recovered/Not Resolved]
  - Platelet count decreased [Not Recovered/Not Resolved]
  - Hypertension [Not Recovered/Not Resolved]
  - Tachycardia [Not Recovered/Not Resolved]
  - Hypercholesterolaemia [Not Recovered/Not Resolved]
  - White blood cell count decreased [Unknown]
